FAERS Safety Report 9304529 (Version 2)
Quarter: 2014Q1

REPORT INFORMATION
  Report Type: Spontaneous
  Country: FR (occurrence: FR)
  Receive Date: 20130523
  Receipt Date: 20140311
  Transmission Date: 20141002
  Serious: Yes (Hospitalization, Other)
  Sender: FDA-Public Use
  Company Number: FR-AMGEN-FRASP2013035699

PATIENT
  Age: 55 Year
  Sex: Female

DRUGS (3)
  1. ENBREL [Suspect]
     Indication: RHEUMATOID ARTHRITIS
     Dosage: 50 MG, WEEKLY
     Route: 058
     Dates: start: 2007, end: 20130405
  2. METOJECT [Concomitant]
     Indication: RHEUMATOID ARTHRITIS
     Dosage: 10 MG, WEEKLY
     Route: 058
     Dates: start: 2007, end: 20130405
  3. LEVOTHYROX [Concomitant]
     Dosage: 75 UG, 1X/DAY
     Route: 048
     Dates: start: 2000

REACTIONS (9)
  - Sjogren^s syndrome [Recovering/Resolving]
  - Encephalitis [Unknown]
  - Intervertebral disc protrusion [Unknown]
  - Viral infection [Unknown]
  - Myelitis transverse [Recovered/Resolved with Sequelae]
  - Vasculitis [Unknown]
  - Demyelination [Unknown]
  - Multiple sclerosis [Recovered/Resolved with Sequelae]
  - Infection [Unknown]
